FAERS Safety Report 10215928 (Version 1)
Quarter: 2014Q2

REPORT INFORMATION
  Report Type: Spontaneous
  Country: US (occurrence: None)
  Receive Date: 20140602
  Receipt Date: 20140602
  Transmission Date: 20141212
  Serious: Yes (Other)
  Sender: FDA-Public Use
  Company Number: DEP_02121_2014

PATIENT
  Sex: Female
  Weight: 120 kg

DRUGS (6)
  1. CAMBIA [Suspect]
     Indication: MIGRAINE
     Dosage: 1 PACKET AS NEEDED
     Route: 048
     Dates: end: 2013
  2. NEXIUM /01479303/ [Concomitant]
  3. ZOLOFT [Concomitant]
  4. AMLODIPINE [Concomitant]
  5. BENTYL [Concomitant]
  6. ZOFRAN /00955302/ [Concomitant]

REACTIONS (13)
  - Drug ineffective [None]
  - Product quality issue [None]
  - Abdominal pain [None]
  - Bile duct stenosis [None]
  - Fatigue [None]
  - Anaemia [None]
  - Speech disorder [None]
  - Nausea [None]
  - Irritable bowel syndrome [None]
  - Nasopharyngitis [None]
  - Hypoglycaemia [None]
  - Heart rate decreased [None]
  - Blood pressure increased [None]
